FAERS Safety Report 10042501 (Version 1)
Quarter: 2014Q1

REPORT INFORMATION
  Report Type: Spontaneous
  Country: AU (occurrence: AU)
  Receive Date: 20140327
  Receipt Date: 20140327
  Transmission Date: 20141002
  Serious: Yes (Other)
  Sender: FDA-Public Use
  Company Number: PHHY2014AU033870

PATIENT
  Age: 72 Year
  Sex: Female

DRUGS (7)
  1. PACLITAXEL [Suspect]
  2. ROSUVASTATIN [Suspect]
  3. EZETIMIBE [Suspect]
  4. GEMFIBROZIL [Concomitant]
     Indication: HYPERLIPIDAEMIA
  5. RAMIPRIL [Concomitant]
     Indication: HYPERTENSION
  6. CLOPIDOGREL [Concomitant]
     Indication: ANTIPLATELET THERAPY
  7. ASPIRIN [Concomitant]
     Indication: ANTIPLATELET THERAPY

REACTIONS (8)
  - Vasculitis [Recovering/Resolving]
  - Rash erythematous [Recovering/Resolving]
  - Skin mass [Recovering/Resolving]
  - Pruritus [Recovered/Resolved]
  - Pain [Recovered/Resolved]
  - Hypersensitivity [Unknown]
  - Rash [Unknown]
  - Vasculitic rash [Recovering/Resolving]
